FAERS Safety Report 7869944-2 (Version None)
Quarter: 2011Q4

REPORT INFORMATION
  Report Type: 
  Country: None (occurrence: None)
  Receive Date: 20111028
  Receipt Date: 20110111
  Transmission Date: 20120403
  Serious: No
  Sender: FDA-Public Use
  Company Number: US-AMGEN-USASP2011001760

PATIENT
  Age: 52 Year
  Sex: Female

DRUGS (8)
  1. LOSARTAN [Concomitant]
     Dosage: 2 MG, QD
  2. OMEPRAZOLE [Concomitant]
     Dosage: 1 MG, QD
  3. ENBREL [Suspect]
     Indication: PSORIASIS
     Dosage: 50 MG, QWK
     Route: 058
  4. INDOMETHACIN [Concomitant]
     Dosage: 2 MG, QD
  5. COLACE [Concomitant]
     Dosage: UNK MG, UNK
  6. DIPHENHYDRAMINE HCL [Concomitant]
     Dosage: 1 MG, QD
  7. HYDROCORTISONE                     /00028602/ [Concomitant]
     Dosage: 2.5 %, UNK
  8. DOVONEX [Concomitant]
     Dosage: 0.005 %, UNK

REACTIONS (1)
  - GASTRIC DISORDER [None]
